FAERS Safety Report 10188196 (Version 1)
Quarter: 2014Q2

REPORT INFORMATION
  Report Type: Spontaneous
  Country: FR (occurrence: FR)
  Receive Date: 20140522
  Receipt Date: 20140522
  Transmission Date: 20141212
  Serious: Yes (Death)
  Sender: FDA-Public Use
  Company Number: FR-PFIZER INC-2014138405

PATIENT
  Age: 57 Year
  Sex: Female

DRUGS (4)
  1. CELEBREX [Suspect]
     Dosage: UNK
     Route: 048
     Dates: start: 201309
  2. PANTOPRAZOLE SODIUM [Suspect]
     Dosage: 20 MG, DAILY
     Route: 048
     Dates: start: 201309
  3. SULPIRIDE [Suspect]
     Dosage: 100 MG, DAILY
     Route: 048
     Dates: start: 1992
  4. DEROXAT [Suspect]
     Dosage: UNK
     Route: 048
     Dates: start: 1992

REACTIONS (1)
  - Sudden death [Fatal]
